FAERS Safety Report 6200135-7 (Version None)
Quarter: 2009Q2

REPORT INFORMATION
  Report Type: 
  Country: None (occurrence: None)
  Receive Date: 20090522
  Receipt Date: 20090514
  Transmission Date: 20091009
  Serious: Yes (Hospitalization)
  Sender: FDA-Public Use
  Company Number: AU-SANOFI-SYNTHELABO-A01200904758

PATIENT
  Sex: Male

DRUGS (1)
  1. PLAVIX [Suspect]
     Indication: PROPHYLAXIS
     Route: 048
     Dates: start: 20040504

REACTIONS (1)
  - NON-CARDIAC CHEST PAIN [None]
